FAERS Safety Report 20013010 (Version 1)
Quarter: 2021Q4

REPORT INFORMATION
  Report Type: Report from Study
  Country: US (occurrence: US)
  Receive Date: 20211029
  Receipt Date: 20211029
  Transmission Date: 20220303
  Serious: Yes (Other)
  Sender: FDA-Public Use
  Company Number: US-GILEAD-2021-0554292

PATIENT
  Age: 65 Year
  Sex: Male
  Weight: 74.5 kg

DRUGS (12)
  1. AVIPTADIL [Suspect]
     Active Substance: AVIPTADIL
     Indication: COVID-19
     Dosage: 200 MG, QD
     Route: 042
     Dates: start: 20211001, end: 20211001
  2. PLACEBO [Suspect]
     Active Substance: UNSPECIFIED INGREDIENT
     Indication: COVID-19
     Dosage: 200 MG, QD
     Route: 042
     Dates: start: 20211001, end: 20211001
  3. REMDESIVIR [Suspect]
     Active Substance: REMDESIVIR
     Indication: COVID-19
     Dosage: 200 MG, QD
     Route: 042
     Dates: start: 20211001, end: 20211001
  4. AVIPTADIL [Suspect]
     Active Substance: AVIPTADIL
     Dosage: 100 MG, QD
     Route: 042
     Dates: start: 20211002, end: 20211005
  5. PLACEBO [Suspect]
     Active Substance: UNSPECIFIED INGREDIENT
     Dosage: 100 MG, QD
     Route: 042
     Dates: start: 20211002, end: 20211005
  6. REMDESIVIR [Suspect]
     Active Substance: REMDESIVIR
     Dosage: 100 MG, QD
     Route: 042
     Dates: start: 20211002, end: 20211005
  7. DEXAMETHASONE [Concomitant]
     Active Substance: DEXAMETHASONE
     Indication: COVID-19
     Dosage: UNK
     Dates: start: 20211001
  8. LOVENOX [Concomitant]
     Active Substance: ENOXAPARIN SODIUM
     Dosage: UNK
     Dates: start: 20211001
  9. BARICITINIB [Concomitant]
     Active Substance: BARICITINIB
     Indication: COVID-19
  10. VANCOMYCIN [Concomitant]
     Active Substance: VANCOMYCIN
     Indication: Evidence based treatment
     Dosage: UNK
     Dates: start: 20211004
  11. TICAGRELOR [Concomitant]
     Active Substance: TICAGRELOR
     Dosage: UNK
     Dates: start: 20211005, end: 20211007
  12. PIPERACILLIN AND TAZOBACTAM [Concomitant]
     Active Substance: PIPERACILLIN SODIUM\TAZOBACTAM SODIUM
     Dosage: UNK
     Dates: start: 20211004

REACTIONS (1)
  - Pulmonary embolism [Not Recovered/Not Resolved]

NARRATIVE: CASE EVENT DATE: 20211007
